FAERS Safety Report 8881005 (Version 1)
Quarter: 2012Q4

REPORT INFORMATION
  Report Type: 
  Country: CA (occurrence: CA)
  Receive Date: 20121101
  Receipt Date: 20121101
  Transmission Date: 20130627
  Serious: Yes (Hospitalization)
  Sender: FDA-Public Use
  Company Number: CA-ALLERGAN-1214773US

PATIENT
  Age: 63 Year
  Sex: Male

DRUGS (1)
  1. BOTOX� [Suspect]
     Indication: MUSCLE DISORDER
     Dosage: UNK
     Route: 030
     Dates: start: 2008

REACTIONS (2)
  - Hernia [Unknown]
  - Meniscus injury [Not Recovered/Not Resolved]
